FAERS Safety Report 14301418 (Version 1)
Quarter: 2017Q4

REPORT INFORMATION
  Report Type: Spontaneous
  Country: US (occurrence: US)
  Receive Date: 20171218
  Receipt Date: 20171218
  Transmission Date: 20180321
  Serious: Yes (Hospitalization, Other)
  Sender: FDA-Public Use
  Company Number: None

PATIENT
  Sex: Female
  Weight: 27 kg

DRUGS (9)
  1. ANY TOPICAL STEROID (WE HAD MANY OVER THE YEARS) [Suspect]
     Active Substance: UNSPECIFIED INGREDIENT
     Indication: ECZEMA
     Route: 061
     Dates: start: 20081201, end: 20150801
  2. VITAMIN D [Concomitant]
     Active Substance: CHOLECALCIFEROL
  3. COLLODIAL SILVER [Concomitant]
  4. VITAMIN C [Concomitant]
     Active Substance: ASCORBIC ACID
  5. TUMERIC [Concomitant]
     Active Substance: HERBALS\TURMERIC
  6. VITAMIN B12 [Concomitant]
     Active Substance: CYANOCOBALAMIN
  7. ACYCLOVIR. [Concomitant]
     Active Substance: ACYCLOVIR
  8. OLIVE LEAF [Concomitant]
  9. FISH OIL [Suspect]
     Active Substance: FISH OIL

REACTIONS (7)
  - Erythema [None]
  - Skin exfoliation [None]
  - Steroid withdrawal syndrome [None]
  - Alopecia [None]
  - Staphylococcal infection [None]
  - Eczema herpeticum [None]
  - Swelling face [None]

NARRATIVE: CASE EVENT DATE: 20150918
